FAERS Safety Report 9758435 (Version 1)
Quarter: 2013Q4

REPORT INFORMATION
  Report Type: Spontaneous
  Country: US (occurrence: US)
  Receive Date: 20131216
  Receipt Date: 20131216
  Transmission Date: 20140711
  Serious: Yes (Other)
  Sender: FDA-Public Use
  Company Number: CHPA2013US018361

PATIENT
  Age: 75 Year
  Sex: Female

DRUGS (2)
  1. GAS-X UNKNOWN [Suspect]
     Indication: FLATULENCE
     Dosage: UNK
     Dates: start: 2003
  2. 4 WAY SALINE MOISTURIZING MIST [Suspect]
     Indication: NASAL CONGESTION
     Dosage: UNK, PRN
     Route: 045
     Dates: start: 2009

REACTIONS (2)
  - Appendicitis perforated [Recovered/Resolved]
  - Urinary tract infection [Not Recovered/Not Resolved]
